FAERS Safety Report 4609867-5 (Version None)
Quarter: 2005Q1

REPORT INFORMATION
  Report Type: 
  Country: None (occurrence: None)
  Receive Date: 20050316
  Receipt Date: 20050224
  Transmission Date: 20050727
  Serious: No
  Sender: FDA-Public Use
  Company Number: US-MERCK-0502USA03334

PATIENT
  Age: 39 Year
  Sex: Male

DRUGS (5)
  1. ZOCOR [Suspect]
     Indication: DYSLIPIDAEMIA
     Route: 048
     Dates: start: 20020801, end: 20040101
  2. IMDUR [Concomitant]
     Route: 065
  3. PRINIVIL [Concomitant]
     Route: 048
  4. COREG [Concomitant]
     Route: 065
  5. ASPIRIN [Concomitant]
     Route: 065

REACTIONS (4)
  - ARTHRALGIA [None]
  - BLOOD CREATINE PHOSPHOKINASE INCREASED [None]
  - FALL [None]
  - MYALGIA [None]
